FAERS Safety Report 8294493-X (Version None)
Quarter: 2012Q2

REPORT INFORMATION
  Report Type: 
  Country: None (occurrence: None)
  Receive Date: 20120418
  Receipt Date: 20120405
  Transmission Date: 20120825
  Serious: No
  Sender: FDA-Public Use
  Company Number: US-UCBSA-053270

PATIENT
  Age: 51 Year
  Sex: Female
  Weight: 97 kg

DRUGS (16)
  1. VITAMIN B-12 [Concomitant]
     Indication: VITAMIN SUPPLEMENTATION
     Route: 030
     Dates: start: 20070101
  2. NAPROXEN [Concomitant]
     Indication: CROHN'S DISEASE
  3. LORAZEPAM [Concomitant]
     Indication: ANXIETY
     Dates: start: 20050101
  4. PAROXETINE [Concomitant]
     Indication: DEPRESSION
     Dosage: TOTAL DAILY DOSE :40 MG
     Dates: start: 20050101
  5. PREDNISONE TAB [Concomitant]
     Indication: CROHN'S DISEASE
     Dates: start: 20111120, end: 20120101
  6. PREDNISONE TAB [Concomitant]
     Dates: start: 19870101, end: 19900101
  7. CERTOLIZUMAB PEGOL [Suspect]
     Indication: CROHN'S DISEASE
     Route: 058
     Dates: start: 20100308
  8. DIFLUCAN [Concomitant]
     Indication: ORAL CANDIDIASIS
     Dosage: FOR 10 DAYS AS NEEDED, 100 MG DAILY
     Route: 048
     Dates: start: 20100625
  9. PREDNISONE TAB [Concomitant]
     Dates: start: 19920101, end: 19920101
  10. VENTOLIN [Concomitant]
     Indication: UPPER RESPIRATORY TRACT INFECTION
     Dosage: 90MCG/ACT 2 PUFFS FOUR TIMES DAILY AS NEEDED
     Dates: start: 20040101
  11. ZOLPIDEM [Concomitant]
     Indication: INSOMNIA
     Dosage: AT BEDTIME
     Dates: start: 20050101
  12. CLARITIN-D [Concomitant]
     Indication: SEASONAL ALLERGY
     Dosage: 5-120 MG DAILY/ AS NEEDED
     Dates: start: 20100301
  13. ESTRADIOL [Concomitant]
     Indication: OESTROGEN REPLACEMENT THERAPY
     Dosage: TOTAL DAILY DOSE :1.5 MG
     Dates: start: 20030101
  14. PREDNISONE TAB [Concomitant]
     Dates: start: 19940201, end: 19940101
  15. RANITIDINE [Concomitant]
     Indication: GASTROOESOPHAGEAL REFLUX DISEASE
     Dates: start: 20040101
  16. PREDNISONE TAB [Concomitant]
     Dates: start: 20090201, end: 20090101

REACTIONS (1)
  - PYREXIA [None]
